FAERS Safety Report 18808698 (Version 5)
Quarter: 2021Q2

REPORT INFORMATION
  Report Type: Report from Study
  Country: FR (occurrence: FR)
  Receive Date: 20210129
  Receipt Date: 20210511
  Transmission Date: 20210717
  Serious: Yes (Hospitalization)
  Sender: FDA-Public Use
  Company Number: FR-BRISTOL-MYERS SQUIBB COMPANY-BMS-2021-005259

PATIENT
  Age: 84 Year
  Sex: Female
  Weight: 72 kg

DRUGS (19)
  1. IPILIMUMAB [Suspect]
     Active Substance: IPILIMUMAB
     Dosage: 65 MILLIGRAM
     Route: 042
     Dates: start: 20210105, end: 20210105
  2. FOLINIC ACID [Suspect]
     Active Substance: LEUCOVORIN
     Dosage: 680 MILLIGRAM
     Route: 042
     Dates: start: 20191217, end: 20191217
  3. OXYCODON [Concomitant]
     Active Substance: OXYCODONE
     Indication: ADVERSE EVENT
     Dosage: 5 MILLIGRAM
     Route: 048
     Dates: start: 20200719
  4. FENTANYL. [Concomitant]
     Active Substance: FENTANYL
     Indication: PROPHYLAXIS
     Route: 062
     Dates: start: 20201009
  5. IRINOTECAN HYDROCHLORIDE. [Suspect]
     Active Substance: IRINOTECAN HYDROCHLORIDE
     Indication: COLORECTAL CANCER METASTATIC
     Dosage: 300 MILLIGRAM
     Route: 042
     Dates: start: 20191128, end: 20191128
  6. IRINOTECAN HYDROCHLORIDE. [Suspect]
     Active Substance: IRINOTECAN HYDROCHLORIDE
     Dosage: 300 MILLIGRAM
     Route: 042
     Dates: start: 20191217, end: 20191217
  7. SANDOSTATINE [Concomitant]
     Active Substance: OCTREOTIDE ACETATE
     Indication: ADVERSE EVENT
     Dosage: 30 ABSENT
     Route: 042
     Dates: start: 20200225
  8. NIVOLUMAB [Suspect]
     Active Substance: NIVOLUMAB
     Indication: COLORECTAL CANCER METASTATIC
     Dosage: 240 MILLIGRAM
     Route: 042
     Dates: start: 20200129, end: 20200129
  9. NIVOLUMAB [Suspect]
     Active Substance: NIVOLUMAB
     Dosage: 480 MILLIGRAM
     Route: 042
     Dates: start: 20201218, end: 20201218
  10. FOLINIC ACID [Suspect]
     Active Substance: LEUCOVORIN
     Indication: COLORECTAL CANCER METASTATIC
     Dosage: 680 MILLIGRAM
     Route: 042
     Dates: start: 20191128, end: 20191128
  11. FLUOROURACIL. [Suspect]
     Active Substance: FLUOROURACIL
     Dosage: 4100 MILLIGRAM
     Route: 042
     Dates: start: 20191217, end: 20191219
  12. CALCIUM [Concomitant]
     Active Substance: CALCIUM
     Indication: PRODUCT USED FOR UNKNOWN INDICATION
     Dosage: 1500 MILLIGRAM
     Route: 048
     Dates: start: 20200211, end: 2020
  13. ELGYDIUM [CHLORHEXIDINE GLUCONATE] [Concomitant]
     Indication: PRODUCT USED FOR UNKNOWN INDICATION
     Dosage: 1 ABSENT
     Route: 065
     Dates: start: 20200211
  14. CIPROFLOXACINE [CIPROFLOXACIN HYDROCHLORIDE] [Concomitant]
     Active Substance: CIPROFLOXACIN HYDROCHLORIDE
     Indication: PRODUCT USED FOR UNKNOWN INDICATION
     Dosage: 800 MILLIGRAM
     Route: 042
     Dates: start: 20200720
  15. IPILIMUMAB [Suspect]
     Active Substance: IPILIMUMAB
     Indication: COLORECTAL CANCER METASTATIC
     Dosage: 65 MILLIGRAM
     Route: 042
     Dates: start: 20200129, end: 20200129
  16. PANTOPRAZOLE [Concomitant]
     Active Substance: PANTOPRAZOLE
     Indication: PRODUCT USED FOR UNKNOWN INDICATION
     Dosage: 80 MILLIGRAM
     Route: 042
     Dates: start: 20200211
  17. FLUOROURACIL. [Suspect]
     Active Substance: FLUOROURACIL
     Indication: COLORECTAL CANCER METASTATIC
     Dosage: 700 MILLIGRAM
     Route: 040
     Dates: start: 20191128, end: 20191128
  18. FLUOROURACIL. [Suspect]
     Active Substance: FLUOROURACIL
     Dosage: 4100 MILLIGRAM
     Route: 042
     Dates: start: 20191128, end: 20191130
  19. FLUOROURACIL. [Suspect]
     Active Substance: FLUOROURACIL
     Dosage: 700 MILLIGRAM
     Route: 040
     Dates: start: 20191217, end: 20191217

REACTIONS (2)
  - Enteritis [Recovered/Resolved]
  - Vomiting [Recovered/Resolved]

NARRATIVE: CASE EVENT DATE: 20210117
